FAERS Safety Report 9137992 (Version 1)
Quarter: 2013Q1

REPORT INFORMATION
  Report Type: Spontaneous
  Country: DE (occurrence: DE)
  Receive Date: 20130304
  Receipt Date: 20130304
  Transmission Date: 20140127
  Serious: Yes (Other)
  Sender: FDA-Public Use
  Company Number: PHHY2013DE020272

PATIENT
  Age: 64 Year
  Sex: Male

DRUGS (2)
  1. ZOLEDRONATE [Suspect]
     Indication: RENAL CANCER
     Route: 042
  2. PAMIDRONATE [Suspect]
     Indication: RENAL CANCER

REACTIONS (2)
  - Osteonecrosis of jaw [Unknown]
  - Periodontitis [Unknown]
